FAERS Safety Report 12190021 (Version 3)
Quarter: 2016Q2

REPORT INFORMATION
  Report Type: Spontaneous
  Country: US (occurrence: US)
  Receive Date: 20160318
  Receipt Date: 20160524
  Transmission Date: 20160815
  Serious: Yes (Other)
  Sender: FDA-Public Use
  Company Number: PHEH2016US006311

PATIENT
  Sex: Female

DRUGS (5)
  1. LORAZEPAM. [Suspect]
     Active Substance: LORAZEPAM
     Indication: DIZZINESS
     Dosage: 0.5 MG, UNK
     Route: 065
  2. LORAZEPAM. [Suspect]
     Active Substance: LORAZEPAM
     Indication: VERTIGO
  3. LORAZEPAM. [Suspect]
     Active Substance: LORAZEPAM
     Indication: ANXIETY
  4. MECLIZINE [Concomitant]
     Active Substance: MECLIZINE HYDROCHLORIDE
     Indication: MOTION SICKNESS
     Route: 065
  5. ZOFRAN [Suspect]
     Active Substance: ONDANSETRON HYDROCHLORIDE
     Indication: PRODUCT USED FOR UNKNOWN INDICATION
     Dosage: 4 MG, UNK
     Route: 042
     Dates: start: 20160221, end: 20160221

REACTIONS (26)
  - Nausea [Unknown]
  - Sinus disorder [Unknown]
  - Ear pain [Unknown]
  - Eye pruritus [Unknown]
  - Haemoptysis [Unknown]
  - Coma [Unknown]
  - Insomnia [Unknown]
  - Drug intolerance [Unknown]
  - Anxiety [Unknown]
  - Dizziness [Not Recovered/Not Resolved]
  - Sedation [Unknown]
  - Serotonin syndrome [Unknown]
  - Vertigo [Unknown]
  - Saliva altered [Unknown]
  - Headache [Unknown]
  - Vomiting [Unknown]
  - Panic attack [Unknown]
  - Dysgeusia [Unknown]
  - Chest pain [Unknown]
  - Hypersensitivity [Unknown]
  - Dysarthria [Unknown]
  - Balance disorder [Unknown]
  - Cough [Unknown]
  - Throat irritation [Unknown]
  - Vision blurred [Unknown]
  - Seizure [Unknown]
